FAERS Safety Report 10554242 (Version 1)
Quarter: 2014Q4

REPORT INFORMATION
  Report Type: Spontaneous
  Country: US (occurrence: None)
  Receive Date: 20141028
  Receipt Date: 20141028
  Transmission Date: 20150529
  Serious: Yes (Other)
  Sender: FDA-Public Use
  Company Number: KAD201410-001320

PATIENT
  Sex: Male

DRUGS (2)
  1. RIBAVIRIN. [Suspect]
     Active Substance: RIBAVIRIN
     Indication: HEPATITIS C
  2. PEGINTERFERON (PEGINTERFERON) (PEGINTERFERON) [Concomitant]

REACTIONS (5)
  - Pancreatic disorder [None]
  - Type 2 diabetes mellitus [None]
  - Nasopharyngitis [None]
  - Memory impairment [None]
  - Therapeutic response unexpected [None]
